FAERS Safety Report 18397054 (Version 1)
Quarter: 2020Q4

REPORT INFORMATION
  Report Type: Spontaneous
  Country: BR (occurrence: BR)
  Receive Date: 20201019
  Receipt Date: 20201019
  Transmission Date: 20210114
  Serious: Yes (Other)
  Sender: FDA-Public Use
  Company Number: BR-ABBVIE-20K-020-3611381-00

PATIENT
  Age: 30 Year
  Sex: Female

DRUGS (2)
  1. ADALIMUMAB [Suspect]
     Active Substance: ADALIMUMAB
     Indication: CROHN^S DISEASE
     Route: 058
  2. INFLIXIMAB [Suspect]
     Active Substance: INFLIXIMAB
     Indication: CROHN^S DISEASE
     Route: 065
     Dates: start: 20160307

REACTIONS (7)
  - Drug resistance [Unknown]
  - Condition aggravated [Not Recovered/Not Resolved]
  - Anaphylactic shock [Unknown]
  - Drug hypersensitivity [Unknown]
  - Near death experience [Unknown]
  - Surgery [Unknown]
  - Fear of disease [Unknown]
